FAERS Safety Report 11068841 (Version 3)
Quarter: 2015Q4

REPORT INFORMATION
  Report Type: Report from Study
  Country: US (occurrence: US)
  Receive Date: 20150427
  Receipt Date: 20151124
  Transmission Date: 20160304
  Serious: Yes (Hospitalization, Other)
  Sender: FDA-Public Use
  Company Number: US-BIOGENIDEC-2015BI052246

PATIENT
  Age: 63 Year
  Sex: Male

DRUGS (2)
  1. AVONEX [Suspect]
     Active Substance: INTERFERON BETA-1A
     Indication: MULTIPLE SCLEROSIS
     Route: 030
     Dates: start: 20061128
  2. AVONEX [Suspect]
     Active Substance: INTERFERON BETA-1A
     Indication: MULTIPLE SCLEROSIS
     Route: 030
     Dates: start: 2008

REACTIONS (8)
  - Myocardial infarction [Recovered/Resolved]
  - Blood potassium increased [Recovered/Resolved]
  - Diabetes mellitus [Unknown]
  - Respiratory disorder [Unknown]
  - Fall [Recovered/Resolved]
  - Arterial occlusive disease [Recovered/Resolved]
  - Cardiac arrest [Recovered/Resolved]
  - Nephropathy toxic [Recovered/Resolved]

NARRATIVE: CASE EVENT DATE: 201502
